FAERS Safety Report 6335456-0 (Version None)
Quarter: 2009Q3

REPORT INFORMATION
  Report Type: 
  Country: None (occurrence: None)
  Receive Date: 20090831
  Receipt Date: 20090819
  Transmission Date: 20100115
  Serious: Yes (Other)
  Sender: FDA-Public Use
  Company Number: US-ROCHE-651566

PATIENT
  Sex: Female

DRUGS (2)
  1. PEG-INTERFERON A-2A (RO 25-8310) [Suspect]
     Indication: HEPATITIS C
     Dosage: FORM: PREFILLED SYRINGE, PATIENT IN WEEK 30
     Route: 065
     Dates: start: 20090123
  2. RIBAVIRIN [Suspect]
     Indication: HEPATITIS C
     Dosage: DIVIDED DOSES, PATIENT IN WEEK 30
     Route: 065
     Dates: start: 20090123

REACTIONS (2)
  - ALOPECIA [None]
  - CONVULSION [None]
